FAERS Safety Report 9717455 (Version 1)
Quarter: 2013Q4

REPORT INFORMATION
  Report Type: Spontaneous
  Country: US (occurrence: US)
  Receive Date: 20131127
  Receipt Date: 20131127
  Transmission Date: 20140711
  Serious: No
  Sender: FDA-Public Use
  Company Number: US-GILEAD-2009-0019773

PATIENT
  Age: 82 Year
  Sex: Male
  Weight: 76.66 kg

DRUGS (9)
  1. LETAIRIS [Suspect]
     Indication: PULMONARY ARTERIAL HYPERTENSION
     Route: 048
     Dates: start: 20080801
  2. REVATIO [Concomitant]
  3. COUMADIN [Concomitant]
  4. MICARDIS [Concomitant]
  5. CADUET [Concomitant]
  6. ANTARA [Concomitant]
  7. GABAPENTIN [Concomitant]
  8. PAXIL [Concomitant]
  9. K-DUR [Concomitant]

REACTIONS (2)
  - Local swelling [Unknown]
  - Nasal congestion [Unknown]
